FAERS Safety Report 5878904-2 (Version None)
Quarter: 2008Q3

REPORT INFORMATION
  Report Type: 
  Country: None (occurrence: None)
  Receive Date: 20080912
  Receipt Date: 20080904
  Transmission Date: 20090109
  Serious: Yes (Other)
  Sender: FDA-Public Use
  Company Number: US-BAYER-200816590NA

PATIENT
  Age: 35 Year
  Sex: Female
  Weight: 60 kg

DRUGS (2)
  1. MIRENA [Suspect]
     Indication: CONTRACEPTION
     Route: 015
     Dates: start: 20080122, end: 20080124
  2. PROPYLTHIOURACIL [Concomitant]
     Indication: BASEDOW'S DISEASE

REACTIONS (9)
  - DIZZINESS [None]
  - IUCD COMPLICATION [None]
  - NAUSEA [None]
  - PELVIC PAIN [None]
  - PROCEDURAL PAIN [None]
  - PROCTALGIA [None]
  - PRURITUS [None]
  - UTERINE PAIN [None]
  - UTERINE RUPTURE [None]
